FAERS Safety Report 19010055 (Version 2)
Quarter: 2022Q1

REPORT INFORMATION
  Report Type: Spontaneous
  Country: IT (occurrence: IT)
  Receive Date: 20210316
  Receipt Date: 20220215
  Transmission Date: 20220424
  Serious: Yes (Other)
  Sender: FDA-Public Use
  Company Number: IT-MINISAL02-690791

PATIENT
  Age: 55 Year
  Sex: Female

DRUGS (1)
  1. EZETIMIBE [Suspect]
     Active Substance: EZETIMIBE
     Indication: Dyslipidaemia
     Dosage: 10 MILLIGRAM, ONCE A DAY
     Route: 048
     Dates: start: 20200306, end: 20200307

REACTIONS (2)
  - Laryngeal oedema [Recovering/Resolving]
  - Myalgia [Recovering/Resolving]

NARRATIVE: CASE EVENT DATE: 20200306
